FAERS Safety Report 5621779-7 (Version None)
Quarter: 2008Q1

REPORT INFORMATION
  Report Type: 
  Country: None (occurrence: None)
  Receive Date: 20080211
  Receipt Date: 20080207
  Transmission Date: 20080703
  Serious: Yes (Other)
  Sender: FDA-Public Use
  Company Number: PHNU2008DE00859

PATIENT
  Sex: Male

DRUGS (1)
  1. AREDIA [Suspect]
     Indication: PLASMACYTOMA
     Dosage: 90 MG, QMO
     Route: 042
     Dates: start: 20010101

REACTIONS (2)
  - IMPAIRED HEALING [None]
  - PATHOLOGICAL FRACTURE [None]
